FAERS Safety Report 9290718 (Version 2)
Quarter: 2013Q2

REPORT INFORMATION
  Report Type: Spontaneous
  Country: AR (occurrence: AR)
  Receive Date: 20130515
  Receipt Date: 20130524
  Transmission Date: 20140414
  Serious: Yes (Other)
  Sender: FDA-Public Use
  Company Number: AR-PFIZER INC-2013146499

PATIENT
  Age: 47 Year
  Sex: Female

DRUGS (4)
  1. RAPAMUNE [Suspect]
     Indication: RENAL TRANSPLANT
     Dosage: 2 MG, 1X/DAY
     Dates: start: 20130205, end: 20130425
  2. RAPAMUNE [Suspect]
     Dosage: 1 MG, 1X/DAY
     Dates: start: 20130429, end: 20130507
  3. RAPAMUNE [Suspect]
     Dosage: 2 MG, 1X/DAY
     Dates: start: 20130508, end: 201305
  4. RAPAMUNE [Suspect]
     Dosage: 1 MG, 1X/DAY
     Dates: start: 201305

REACTIONS (2)
  - Fall [Recovering/Resolving]
  - Limb injury [Recovering/Resolving]
